FAERS Safety Report 17551317 (Version 2)
Quarter: 2020Q2

REPORT INFORMATION
  Report Type: Spontaneous
  Country: NO (occurrence: NO)
  Receive Date: 20200317
  Receipt Date: 20200618
  Transmission Date: 20200713
  Serious: Yes (Life-Threatening)
  Sender: FDA-Public Use
  Company Number: NO-AXELLIA-003032

PATIENT
  Age: 13 Year
  Sex: Male

DRUGS (7)
  1. SEVOFLURANE. [Concomitant]
     Active Substance: SEVOFLURANE
     Indication: REMOVAL OF INTERNAL FIXATION
     Dates: start: 20200219, end: 20200219
  2. PROPOFOL. [Concomitant]
     Active Substance: PROPOFOL
     Indication: REMOVAL OF INTERNAL FIXATION
     Dates: start: 20200219, end: 20200219
  3. VANCOMYCIN [Suspect]
     Active Substance: VANCOMYCIN
     Indication: IMPLANT SITE INFECTION
     Route: 042
     Dates: start: 20200219, end: 20200219
  4. TRANEXAMIC ACID. [Concomitant]
     Active Substance: TRANEXAMIC ACID
     Indication: REMOVAL OF INTERNAL FIXATION
     Dates: start: 20200219, end: 20200219
  5. REMIFENTANIL/REMIFENTANIL HYDROCHLORIDE [Concomitant]
     Active Substance: REMIFENTANIL HYDROCHLORIDE
     Indication: REMOVAL OF INTERNAL FIXATION
     Route: 042
     Dates: start: 20200219, end: 20200219
  6. BACLOFEN. [Concomitant]
     Active Substance: BACLOFEN
  7. FENTANYL. [Concomitant]
     Active Substance: FENTANYL
     Indication: REMOVAL OF INTERNAL FIXATION
     Dates: start: 20200219, end: 20200219

REACTIONS (4)
  - Anaphylactoid reaction [Recovering/Resolving]
  - Tachycardia [Recovered/Resolved]
  - Respiratory distress [Recovered/Resolved]
  - Hypotension [Recovered/Resolved]

NARRATIVE: CASE EVENT DATE: 20200219
